FAERS Safety Report 8428694-4 (Version None)
Quarter: 2012Q2

REPORT INFORMATION
  Report Type: 
  Country: None (occurrence: None)
  Receive Date: 20120605
  Receipt Date: 20120522
  Transmission Date: 20120825
  Serious: Yes (Life-Threatening, Hospitalization)
  Sender: FDA-Public Use
  Company Number: DKLU1081426

PATIENT
  Age: 34 Year
  Sex: Male

DRUGS (3)
  1. AMPHETAMINE SULFATE [Suspect]
     Indication: PRODUCT USED FOR UNKNOWN INDICATION
  2. COCAINE (COCAINE) [Suspect]
     Indication: PRODUCT USED FOR UNKNOWN INDICATION
  3. DESOXYN [Suspect]
     Indication: PRODUCT USED FOR UNKNOWN INDICATION

REACTIONS (11)
  - COMA [None]
  - HYPOTHERMIA [None]
  - DRUG SCREEN POSITIVE [None]
  - LACERATION [None]
  - MIOSIS [None]
  - SINUS BRADYCARDIA [None]
  - BRADYCARDIA [None]
  - EAR HAEMORRHAGE [None]
  - PUPILLARY REFLEX IMPAIRED [None]
  - TOXICITY TO VARIOUS AGENTS [None]
  - WHEEZING [None]
